FAERS Safety Report 8696557 (Version 2)
Quarter: 2012Q4

REPORT INFORMATION
  Report Type: 
  Country: US (occurrence: US)
  Receive Date: 20120801
  Receipt Date: 20121221
  Transmission Date: 20130627
  Serious: Yes (Hospitalization)
  Sender: FDA-Public Use
  Company Number: US-BAYER-2012-073914

PATIENT
  Age: 33 Year
  Sex: Female
  Weight: 108.84 kg

DRUGS (17)
  1. YAZ [Suspect]
     Indication: ACNE
     Dosage: UNK
     Dates: start: 201002
  2. YAZ [Suspect]
     Indication: CONTRACEPTION
     Dosage: UNK
     Dates: start: 2009, end: 2010
  3. YAZ [Suspect]
     Indication: PREMENSTRUAL SYNDROME
  4. EFFEXOR XR [Concomitant]
     Indication: BIPOLAR DISORDER
     Dosage: 150 mg,daily
     Route: 048
     Dates: start: 2008
  5. FUROSEMIDE [Concomitant]
     Dosage: 40 mg, UNK
  6. GEMFIBROZIL [Concomitant]
     Dosage: 600 mg, UNK
  7. GEMFIBROZIL [Concomitant]
     Dosage: UNK
     Dates: start: 20100505
  8. ALLERGY MEDICATION [Concomitant]
  9. REQUIP [Concomitant]
     Dosage: 4 mg, once daily at bedtime
     Route: 048
  10. ZEGERID [Concomitant]
     Dosage: 40/1100 mg daily
  11. VENTOLIN HFA [Concomitant]
     Dosage: UNK
     Route: 045
     Dates: start: 20100710
  12. CLONAZEPAM [Concomitant]
     Dosage: 0.5 mg, TID
  13. FLOVENT HFA [Concomitant]
     Dosage: 110 mcg 2 puffs twice daily
     Route: 045
  14. LORTAB [Concomitant]
     Indication: PAIN
     Dosage: 5/500 one to two tablets every 4 hours [as needed]; 7.5/500 one tablet every
  15. LORTAB [Concomitant]
     Indication: PAIN
     Dosage: 7.5/500 one tablet every 4 - 6 hours [as needed]
  16. METFORMIN [Concomitant]
     Dosage: 500 mg, QID
     Route: 048
  17. MORPHINE SULFATE [Concomitant]
     Dosage: 30 mg, BID
     Route: 048

REACTIONS (6)
  - Cholelithiasis [None]
  - Cholecystitis chronic [None]
  - Injury [None]
  - Pain [None]
  - Pain [None]
  - Off label use [None]
